FAERS Safety Report 17426276 (Version 2)
Quarter: 2020Q1

REPORT INFORMATION
  Report Type: Spontaneous
  Country: US (occurrence: US)
  Receive Date: 20200218
  Receipt Date: 20200220
  Transmission Date: 20200409
  Serious: Yes (Hospitalization)
  Sender: FDA-Public Use
  Company Number: US-UNITED THERAPEUTICS-UNT-2020-002298

PATIENT
  Age: 51 Year
  Sex: Male
  Weight: 98.87 kg

DRUGS (1)
  1. REMODULIN [Suspect]
     Active Substance: TREPROSTINIL
     Indication: PULMONARY ARTERIAL HYPERTENSION
     Dosage: 0.022 ?G/KG, CONTINUING
     Route: 041
     Dates: start: 20200206

REACTIONS (10)
  - Medical device removal [Unknown]
  - Device malfunction [Unknown]
  - Tachycardia [Unknown]
  - Pain in extremity [Not Recovered/Not Resolved]
  - Accidental overdose [Unknown]
  - Headache [Recovered/Resolved]
  - Flushing [Unknown]
  - Myalgia [Unknown]
  - Muscle spasms [Unknown]
  - Pain in jaw [Not Recovered/Not Resolved]

NARRATIVE: CASE EVENT DATE: 20200208
